FAERS Safety Report 8235503-5 (Version None)
Quarter: 2012Q1

REPORT INFORMATION
  Report Type: 
  Country: None (occurrence: None)
  Receive Date: 20120322
  Receipt Date: 20120306
  Transmission Date: 20120608
  Serious: Yes (Other)
  Sender: FDA-Public Use
  Company Number: FK201200779

PATIENT
  Sex: Male

DRUGS (7)
  1. PREDNISOLONE [Suspect]
     Indication: NON-HODGKIN'S LYMPHOMA
  2. VINCRISTINE [Suspect]
     Indication: NON-HODGKIN'S LYMPHOMA
  3. CYCLOPHOSPHAMIDE [Suspect]
     Indication: NON-HODGKIN'S LYMPHOMA
  4. DOXORUBICNI (MANUFACTURER UNKNOWN) (DOXORUBICIN) (DOXORUBICIN) [Suspect]
     Indication: NON-HODGKIN'S LYMPHOMA
  5. BLEOMYCIN SULFATE [Suspect]
     Indication: NON-HODGKIN'S LYMPHOMA
  6. METHOTREXATE [Suspect]
     Indication: NON-HODGKIN'S LYMPHOMA
  7. LEUCOVORIN CALCIUM [Suspect]
     Indication: NON-HODGKIN'S LYMPHOMA

REACTIONS (4)
  - THROMBOCYTOPENIA [None]
  - LEUKOPENIA [None]
  - MYELODYSPLASTIC SYNDROME [None]
  - ANAEMIA [None]
